FAERS Safety Report 12486572 (Version 2)
Quarter: 2016Q3

REPORT INFORMATION
  Report Type: Report from Study
  Country: US (occurrence: US)
  Receive Date: 20160621
  Receipt Date: 20160715
  Transmission Date: 20161109
  Serious: Yes (Hospitalization)
  Sender: FDA-Public Use
  Company Number: US-EXELIXIS-CABO-16006425

PATIENT
  Sex: Male

DRUGS (6)
  1. COMETRIQ [Suspect]
     Active Substance: CABOZANTINIB S-MALATE
     Indication: THYROID CANCER
     Dosage: 140 MG, QD
     Route: 048
     Dates: start: 20160418, end: 20160522
  2. SIMVASTATIN. [Concomitant]
     Active Substance: SIMVASTATIN
  3. TYLENOL [Concomitant]
     Active Substance: ACETAMINOPHEN
  4. CEPHALEXIN. [Concomitant]
     Active Substance: CEPHALEXIN
  5. COMETRIQ [Suspect]
     Active Substance: CABOZANTINIB S-MALATE
     Dosage: 140 MG, QD
     Route: 048
     Dates: start: 201606, end: 201606
  6. DEXAMETHASONE. [Concomitant]
     Active Substance: DEXAMETHASONE

REACTIONS (9)
  - Ageusia [Unknown]
  - Oesophagitis [Unknown]
  - Glossodynia [Unknown]
  - Productive cough [Unknown]
  - Tracheostomy infection [Unknown]
  - Fluid retention [Unknown]
  - Asthenia [Unknown]
  - Oropharyngeal pain [Unknown]
  - Blister [Not Recovered/Not Resolved]
